FAERS Safety Report 18418301 (Version 2)
Quarter: 2020Q4

REPORT INFORMATION
  Report Type: Report from Study
  Country: US (occurrence: US)
  Receive Date: 20201023
  Receipt Date: 20201027
  Transmission Date: 20210114
  Serious: Yes (Hospitalization, Other)
  Sender: FDA-Public Use
  Company Number: US-GLAXOSMITHKLINE-US2020AMR178522

PATIENT
  Sex: Female

DRUGS (2)
  1. NIRAPARIB [Suspect]
     Active Substance: NIRAPARIB
     Indication: FALLOPIAN TUBE CANCER
     Dosage: 300 MG, QD
     Dates: start: 20200830, end: 20200914
  2. NIRAPARIB [Suspect]
     Active Substance: NIRAPARIB
     Dosage: 300 MG, QD
     Dates: end: 20201020

REACTIONS (19)
  - Decreased appetite [Not Recovered/Not Resolved]
  - Haemoglobin decreased [Not Recovered/Not Resolved]
  - Retching [Unknown]
  - Back pain [Unknown]
  - Nephrolithiasis [Unknown]
  - Food aversion [Unknown]
  - Skin exfoliation [Unknown]
  - Abdominal pain lower [Unknown]
  - Muscle strain [Unknown]
  - Sleep disorder [Unknown]
  - Skin burning sensation [Unknown]
  - Asthenia [Unknown]
  - Platelet count decreased [Not Recovered/Not Resolved]
  - Fatigue [Unknown]
  - Stomatitis [Not Recovered/Not Resolved]
  - White blood cell count decreased [Unknown]
  - Dehydration [Unknown]
  - Insomnia [Unknown]
  - Epistaxis [Unknown]
